FAERS Safety Report 6857323-6 (Version None)
Quarter: 2010Q3

REPORT INFORMATION
  Report Type: 
  Country: None (occurrence: None)
  Receive Date: 20100719
  Receipt Date: 20100707
  Transmission Date: 20110219
  Serious: Yes (Other)
  Sender: FDA-Public Use
  Company Number: AU-PFIZER INC-2010085496

PATIENT
  Age: 45 Year
  Sex: Male

DRUGS (1)
  1. CHAMPIX [Suspect]
     Dosage: UNK

REACTIONS (1)
  - HAEMORRHAGE [None]
